FAERS Safety Report 6665608-1 (Version None)
Quarter: 2010Q1

REPORT INFORMATION
  Report Type: 
  Country: None (occurrence: None)
  Receive Date: 20100325
  Receipt Date: 20091106
  Transmission Date: 20100710
  Serious: No
  Sender: FDA-Public Use
  Company Number: 2009-00723

PATIENT
  Age: 56 Year
  Sex: Female
  Weight: 65.7716 kg

DRUGS (1)
  1. RAPIDMELTS WITH VITAMIN C [Suspect]
     Dosage: Q3 HOURS 6 DAYS
     Dates: start: 20091030, end: 20091104

REACTIONS (1)
  - AGEUSIA [None]
